FAERS Safety Report 18457313 (Version 2)
Quarter: 2020Q4

REPORT INFORMATION
  Report Type: Spontaneous
  Country: US (occurrence: US)
  Receive Date: 20201030
  Receipt Date: 20201130
  Transmission Date: 20210114
  Serious: Yes (Hospitalization)
  Sender: FDA-Public Use
  Company Number: US-SA-2020SA301213

PATIENT

DRUGS (2)
  1. LANTUS SOLOSTAR [Suspect]
     Active Substance: INSULIN GLARGINE
     Indication: TYPE 1 DIABETES MELLITUS
     Dosage: 6 UNITS IN THE AM (MORNING) + 2-3 UNITS IN THE PM (AFTERNOON OR EVENING OR NIGHT), BID
     Route: 065
  2. LANTUS SOLOSTAR [Suspect]
     Active Substance: INSULIN GLARGINE
     Dosage: 6 IU AM AND 2 IU PM, DAILY DOSAGE
     Route: 065
     Dates: start: 20201005, end: 20201023

REACTIONS (3)
  - Fall [Unknown]
  - Inappropriate schedule of product administration [Unknown]
  - Lower limb fracture [Unknown]
